FAERS Safety Report 19297703 (Version 1)
Quarter: 2021Q2

REPORT INFORMATION
  Report Type: Spontaneous
  Country: US (occurrence: US)
  Receive Date: 20210524
  Receipt Date: 20210524
  Transmission Date: 20210717
  Serious: Yes (Other)
  Sender: FDA-Public Use
  Company Number: US-BRISTOL-MYERS SQUIBB COMPANY-BMS-2021-047727

PATIENT
  Age: 6 Decade
  Sex: Female

DRUGS (1)
  1. YERVOY [Suspect]
     Active Substance: IPILIMUMAB
     Indication: MALIGNANT MELANOMA
     Dosage: 10 MILLIGRAM/KILOGRAM
     Route: 065
     Dates: start: 2016

REACTIONS (4)
  - Melanoma recurrent [Recovered/Resolved]
  - Lymphadenitis [Recovered/Resolved]
  - Adrenal insufficiency [Recovered/Resolved]
  - Hypophysitis [Recovered/Resolved]
